FAERS Safety Report 15893194 (Version 2)
Quarter: 2019Q2

REPORT INFORMATION
  Report Type: Report from Study
  Country: US (occurrence: US)
  Receive Date: 20190130
  Receipt Date: 20190531
  Transmission Date: 20190711
  Serious: Yes (Death)
  Sender: FDA-Public Use
  Company Number: US-EXELIXIS-CABO-18015449

PATIENT
  Age: 57 Year
  Sex: Male

DRUGS (2)
  1. CABOMETYX [Suspect]
     Active Substance: CABOZANTINIB S-MALATE
     Indication: METASTASES TO REPRODUCTIVE ORGAN
     Dosage: 20 MG, QD
     Route: 048
     Dates: start: 2018, end: 2018
  2. CABOMETYX [Suspect]
     Active Substance: CABOZANTINIB S-MALATE
     Indication: PROSTATE CANCER
     Dosage: 40 MG, QD
     Route: 048
     Dates: start: 20180726, end: 20180729

REACTIONS (5)
  - Discomfort [Unknown]
  - Peripheral swelling [Unknown]
  - Off label use [Unknown]
  - Dry mouth [Unknown]
  - Death [Fatal]

NARRATIVE: CASE EVENT DATE: 201807
